FAERS Safety Report 9245762 (Version 1)
Quarter: 2013Q1

REPORT INFORMATION
  Report Type: Spontaneous
  Country: US (occurrence: None)
  Receive Date: 20121130
  Receipt Date: 20121130
  Transmission Date: 20140127
  Serious: Yes (Hospitalization, Other)
  Sender: FDA-Public Use
  Company Number: 347679

PATIENT
  Age: 69 Year
  Sex: Female
  Weight: 59 kg

DRUGS (5)
  1. NOVOLOG FLEX PEN [Suspect]
     Indication: TYPE 2 DIABETES MELLITUS
  2. LANTUS (INSULIN GLARGINE) [Suspect]
     Indication: TYPE 2 DIABETES MELLITUS
  3. HUMALOG MIX [Suspect]
     Indication: TYPE 2 DIABETES MELLITUS
  4. NPH INSULIN [Suspect]
     Indication: TYPE 2 DIABETES MELLITUS
  5. GLYBURIDE (GLIBENCLAMIDE) [Suspect]

REACTIONS (1)
  - Hypersensitivity [None]
